FAERS Safety Report 10193791 (Version 1)
Quarter: 2014Q2

REPORT INFORMATION
  Report Type: Spontaneous
  Country: US (occurrence: US)
  Receive Date: 20140524
  Receipt Date: 20140524
  Transmission Date: 20141212
  Serious: No
  Sender: FDA-Public Use
  Company Number: US-SANOFI-AVENTIS-2013SA043727

PATIENT
  Age: 77 Year
  Sex: Female

DRUGS (3)
  1. SOLOSTAR [Suspect]
     Indication: TYPE 2 DIABETES MELLITUS
     Dosage: THERAPY START DATE - QUITE A WHILE
  2. LANTUS SOLOSTAR [Suspect]
     Indication: TYPE 2 DIABETES MELLITUS
     Dosage: THERAPY START DATE - QUITE A WHILE DOSE:50 UNIT(S)
     Route: 051
  3. NOVOLOG [Concomitant]

REACTIONS (5)
  - Vision blurred [Unknown]
  - Asthenia [Unknown]
  - Frustration [Unknown]
  - Feeling abnormal [Unknown]
  - Injection site pain [Unknown]
